FAERS Safety Report 9943985 (Version 2)
Quarter: 2014Q2

REPORT INFORMATION
  Report Type: Spontaneous
  Country: DE (occurrence: DE)
  Receive Date: 20140303
  Receipt Date: 20140428
  Transmission Date: 20141212
  Serious: Yes (Life-Threatening, Hospitalization)
  Sender: FDA-Public Use
  Company Number: PHHY2014DE025211

PATIENT
  Sex: Male
  Weight: 62 kg

DRUGS (3)
  1. TEGRETAL [Suspect]
     Indication: EPILEPSY
     Dosage: 800 MG, DAILY
     Route: 048
  2. TEGRETAL [Suspect]
     Dosage: UNK UKN, SLOWLY REDUCED AND FINALLY STOPPED
     Route: 048
  3. DIAZEPAM [Concomitant]
     Dosage: UNK UKN, UNK

REACTIONS (5)
  - Haematochezia [Recovered/Resolved]
  - Circulatory collapse [Recovered/Resolved]
  - Anaemia [Recovered/Resolved]
  - Haemoglobin decreased [Recovered/Resolved]
  - Platelet count increased [Recovered/Resolved]
